FAERS Safety Report 18604756 (Version 1)
Quarter: 2020Q4

REPORT INFORMATION
  Report Type: Spontaneous
  Country: JP (occurrence: JP)
  Receive Date: 20201211
  Receipt Date: 20201211
  Transmission Date: 20210114
  Serious: Yes (Hospitalization)
  Sender: FDA-Public Use
  Company Number: JP-GLAXOSMITHKLINE-JP2020242789

PATIENT
  Sex: Male

DRUGS (2)
  1. AVOLVE [Suspect]
     Active Substance: DUTASTERIDE
     Dosage: UNK
     Route: 050
  2. AVOLVE [Suspect]
     Active Substance: DUTASTERIDE
     Dosage: UNK
     Route: 065

REACTIONS (2)
  - Product use issue [Unknown]
  - Rehabilitation therapy [Unknown]
